FAERS Safety Report 7557776-4 (Version None)
Quarter: 2011Q2

REPORT INFORMATION
  Report Type: 
  Country: None (occurrence: None)
  Receive Date: 20110620
  Receipt Date: 20110613
  Transmission Date: 20111010
  Serious: Yes (Other)
  Sender: FDA-Public Use
  Company Number: IT-ROXANE LABORATORIES, INC.-2011-RO-00811RO

PATIENT
  Age: 53 Year
  Sex: Female

DRUGS (2)
  1. LITHIUM CARBONATE [Suspect]
     Indication: BIPOLAR I DISORDER
  2. VALPROIC ACID [Suspect]
     Indication: BIPOLAR I DISORDER

REACTIONS (1)
  - NEPHROPATHY TOXIC [None]
